FAERS Safety Report 10629120 (Version 2)
Quarter: 2014Q4

REPORT INFORMATION
  Report Type: Report from Study
  Country: US (occurrence: US)
  Receive Date: 20141205
  Receipt Date: 20141205
  Transmission Date: 20150529
  Serious: Yes (Hospitalization, Other)
  Sender: FDA-Public Use
  Company Number: US-ROCHE-1337273

PATIENT
  Sex: Female

DRUGS (7)
  1. CHLORTHALIDONE. [Concomitant]
     Active Substance: CHLORTHALIDONE
     Indication: BLOOD PRESSURE
  2. PLAVIX [Concomitant]
     Active Substance: CLOPIDOGREL BISULFATE
     Indication: ANTICOAGULANT THERAPY
  3. LUCENTIS [Suspect]
     Active Substance: RANIBIZUMAB
     Indication: MACULAR DEGENERATION
     Dosage: BOTH EYES.
     Route: 065
  4. NEURONTIN [Concomitant]
     Active Substance: GABAPENTIN
     Indication: DIABETIC NEUROPATHY
     Route: 065
     Dates: start: 201301
  5. COLCRYS [Concomitant]
     Active Substance: COLCHICINE
     Indication: GOUT
  6. HYDRALAZINE [Concomitant]
     Active Substance: HYDRALAZINE HYDROCHLORIDE
     Indication: BLOOD PRESSURE
  7. VYTORIN [Concomitant]
     Active Substance: EZETIMIBE\SIMVASTATIN
     Indication: BLOOD CHOLESTEROL

REACTIONS (9)
  - Vision blurred [Unknown]
  - Myocardial infarction [Unknown]
  - Cardiac pacemaker insertion [Unknown]
  - Visual acuity reduced [Unknown]
  - Diabetic neuropathy [Unknown]
  - Pain [Unknown]
  - Colour blindness acquired [Unknown]
  - Vascular occlusion [Unknown]
  - Cardiac disorder [Unknown]
